FAERS Safety Report 5569874-5 (Version None)
Quarter: 2007Q4

REPORT INFORMATION
  Report Type: 
  Country: None (occurrence: None)
  Receive Date: 20071217
  Receipt Date: 20071130
  Transmission Date: 20080405
  Serious: Yes (Life-Threatening, Hospitalization, Other)
  Sender: FDA-Public Use
  Company Number: A-NJ2007-18603

PATIENT
  Age: 65 Year
  Sex: Female

DRUGS (8)
  1. TRACLEER [Suspect]
     Indication: PULMONARY HYPERTENSION
     Dosage: 125 MG, BID, ORAL; 62.5 MG, BID, ORAL
     Route: 048
     Dates: start: 20070201, end: 20070301
  2. TRACLEER [Suspect]
     Indication: PULMONARY HYPERTENSION
     Dosage: 125 MG, BID, ORAL; 62.5 MG, BID, ORAL
     Route: 048
     Dates: start: 20070301, end: 20071120
  3. SILDENAFIL CITRATE [Concomitant]
  4. ATACAND [Concomitant]
  5. PROTONIX [Concomitant]
  6. REGLAN [Concomitant]
  7. ASPIRIN [Concomitant]
  8. MULTIVITAMIN [Concomitant]

REACTIONS (8)
  - ACUTE HEPATIC FAILURE [None]
  - ANTINUCLEAR ANTIBODY POSITIVE [None]
  - BILIARY DILATATION [None]
  - DRUG TOXICITY [None]
  - GALLBLADDER DISORDER [None]
  - HYPOTENSION [None]
  - RENAL FAILURE ACUTE [None]
  - SERUM FERRITIN INCREASED [None]
